FAERS Safety Report 7397500-1 (Version None)
Quarter: 2011Q2

REPORT INFORMATION
  Report Type: 
  Country: None (occurrence: None)
  Receive Date: 20110406
  Receipt Date: 20110404
  Transmission Date: 20111010
  Serious: Yes (Death, Other)
  Sender: FDA-Public Use
  Company Number: PHHY2011GB23986

PATIENT
  Age: 89 Year
  Sex: Female

DRUGS (16)
  1. RISPERIDONE [Suspect]
     Route: 048
  2. CARBIMAZOLE [Concomitant]
     Route: 048
  3. FORTISIP [Concomitant]
     Route: 048
  4. AMOXICILLIN [Concomitant]
     Indication: PARKINSON'S DISEASE
  5. IRON [Concomitant]
     Route: 048
  6. ROPINIROLE [Suspect]
     Indication: PARKINSON'S DISEASE
     Dosage: 3 MG, QD
     Route: 048
  7. ROPINIROLE [Suspect]
     Dosage: 6 MG, QD
  8. CARBIDOPA [Concomitant]
     Indication: PARKINSON'S DISEASE
  9. SINEMET [Concomitant]
     Dosage: 250 UG, QD
     Route: 048
  10. SPARTEINE SULFATE [Concomitant]
  11. BISOPROLOL FUMARATE [Concomitant]
     Dosage: 5 MG, QD
  12. DIGOXIN [Concomitant]
     Dosage: 62.5 UG, QD
     Route: 048
  13. FUROSEMIDE [Concomitant]
  14. ASPIRIN [Concomitant]
     Dosage: 75 MG, QD
  15. LACTULOSE [Concomitant]
     Dosage: 20 ML, QD
     Route: 048
  16. LEVODOPA [Concomitant]
     Indication: PARKINSON'S DISEASE

REACTIONS (2)
  - WRONG DRUG ADMINISTERED [None]
  - DEATH [None]
